FAERS Safety Report 8977835 (Version 2)
Quarter: 2012Q4

REPORT INFORMATION
  Report Type: Report from Study
  Country: CO (occurrence: CO)
  Receive Date: 20121219
  Receipt Date: 20121226
  Transmission Date: 20130627
  Serious: Yes (Other)
  Sender: FDA-Public Use
  Company Number: CO-PFIZER INC-2012315217

PATIENT
  Age: 7 Year
  Sex: Male
  Weight: 28 kg

DRUGS (1)
  1. XYNTHA [Suspect]
     Indication: HEMOPHILIA
     Dosage: 500 IU, Prophylaxis
     Route: 042
     Dates: start: 20120731

REACTIONS (1)
  - No adverse event [Unknown]
